FAERS Safety Report 8553136-8 (Version None)
Quarter: 2012Q3

REPORT INFORMATION
  Report Type: 
  Country: None (occurrence: None)
  Receive Date: 20120731
  Receipt Date: 20120723
  Transmission Date: 20120928
  Serious: Yes (Life-Threatening, Other)
  Sender: FDA-Public Use
  Company Number: JP-SANOFI-AVENTIS-2012SA010018

PATIENT
  Age: 47 Year
  Sex: Male
  Weight: 94.2 kg

DRUGS (12)
  1. LANTUS SOLOSTAR [Suspect]
     Indication: DIABETES MELLITUS
     Dosage: DOSE:25 UNIT(S)
     Route: 058
     Dates: start: 20110926, end: 20120210
  2. LANTUS SOLOSTAR [Suspect]
     Dosage: DOSE: 100-110 UNITS
     Route: 058
     Dates: start: 20120211, end: 20120211
  3. METFORMIN HYDROCHLORIDE [Concomitant]
     Indication: DIABETES MELLITUS
     Route: 048
     Dates: start: 20120207
  4. NOVORAPID [Concomitant]
  5. CARVEDILOL [Concomitant]
     Indication: HYPERTENSION
     Route: 048
     Dates: start: 20110926
  6. HUMALOG [Concomitant]
     Indication: DIABETES MELLITUS
     Dosage: DOSE:14 UNIT(S)
     Route: 058
     Dates: start: 20111012, end: 20120402
  7. SITAGLIPTIN PHOSPHATE [Concomitant]
     Indication: DIABETES MELLITUS
     Route: 048
     Dates: start: 20110926
  8. PLAVIX [Concomitant]
     Indication: CEREBROVASCULAR ACCIDENT PROPHYLAXIS
     Route: 048
     Dates: start: 20110926
  9. SOLOSTAR [Suspect]
     Indication: DEVICE THERAPY
     Dates: start: 20110926, end: 20120210
  10. SOLOSTAR [Suspect]
     Dates: start: 20120211, end: 20120211
  11. AMARYL [Concomitant]
     Indication: DIABETES MELLITUS
     Route: 048
     Dates: start: 20120207, end: 20120415
  12. VOGLIBOSE [Concomitant]
     Indication: DIABETES MELLITUS
     Route: 048
     Dates: start: 20110926, end: 20120612

REACTIONS (26)
  - ACCIDENTAL OVERDOSE [None]
  - PALLOR [None]
  - ABULIA [None]
  - TREMOR [None]
  - POST-TRAUMATIC STRESS DISORDER [None]
  - DYSAESTHESIA [None]
  - NAUSEA [None]
  - ANXIETY [None]
  - IRRITABILITY [None]
  - NERVOUSNESS [None]
  - DISTURBANCE IN ATTENTION [None]
  - DEPRESSED LEVEL OF CONSCIOUSNESS [None]
  - DIZZINESS [None]
  - OBSESSIVE THOUGHTS [None]
  - INTENTIONAL SELF-INJURY [None]
  - PANIC REACTION [None]
  - MUSCLE SPASMS [None]
  - MENTAL DISORDER [None]
  - MALAISE [None]
  - HYPOGLYCAEMIA [None]
  - PERSONALITY DISORDER [None]
  - HEADACHE [None]
  - ASTHENIA [None]
  - PALPITATIONS [None]
  - FEAR [None]
  - HYPERHIDROSIS [None]
